FAERS Safety Report 24547879 (Version 1)
Quarter: 2024Q4

REPORT INFORMATION
  Report Type: Spontaneous
  Country: US (occurrence: US)
  Receive Date: 20241025
  Receipt Date: 20241025
  Transmission Date: 20250115
  Serious: Yes (Other)
  Sender: ADARE PHARMACEUTICALS
  Company Number: US-Adarepharm-2024-US-000092

PATIENT
  Age: 77 Year
  Sex: Male

DRUGS (3)
  1. PROPRANOLOL [Suspect]
     Active Substance: PROPRANOLOL HYDROCHLORIDE
     Indication: Tremor
  2. PRIMIDONE [Concomitant]
     Active Substance: PRIMIDONE
  3. TOPIRAMATE [Concomitant]
     Active Substance: TOPIRAMATE

REACTIONS (2)
  - Bradycardia [Unknown]
  - Erectile dysfunction [Unknown]
